FAERS Safety Report 7473736-6 (Version None)
Quarter: 2011Q2

REPORT INFORMATION
  Report Type: 
  Country: None (occurrence: None)
  Receive Date: 20110511
  Receipt Date: 20110502
  Transmission Date: 20111010
  Serious: Yes (Hospitalization)
  Sender: FDA-Public Use
  Company Number: US-ASTRAZENECA-2010SE38769

PATIENT
  Age: 54 Year
  Sex: Female

DRUGS (3)
  1. ACIPHEX [Concomitant]
  2. NEXIUM [Suspect]
     Route: 048
  3. RHINOCORT [Suspect]
     Route: 045

REACTIONS (6)
  - STRESS [None]
  - MIGRAINE [None]
  - CEREBROVASCULAR ACCIDENT [None]
  - DYSPEPSIA [None]
  - DRUG DOSE OMISSION [None]
  - INSOMNIA [None]
